FAERS Safety Report 6102303-1 (Version None)
Quarter: 2009Q1

REPORT INFORMATION
  Report Type: 
  Country: None (occurrence: None)
  Receive Date: 20090304
  Receipt Date: 20090224
  Transmission Date: 20090719
  Serious: Yes (Life-Threatening)
  Sender: FDA-Public Use
  Company Number: AT-AVENTIS-200910968EU

PATIENT
  Age: 83 Year
  Sex: Male
  Weight: 90 kg

DRUGS (10)
  1. LASIX [Suspect]
     Indication: HYPERTENSION
     Dosage: DOSE: UNK
  2. ALDACTONE [Suspect]
     Indication: HYPERTENSION
     Dosage: DOSE: UNK
  3. AQUAPHORIL [Suspect]
     Indication: HYPERTENSION
     Dosage: DOSE: UNK
     Route: 048
  4. ACETYLCYSTEINE BEXAL [Concomitant]
     Indication: PULMONARY EMBOLISM
     Dosage: DOSE: UNK
     Route: 048
  5. AMILORID [Concomitant]
     Dosage: DOSE: UNK
     Route: 048
  6. CILAZAPRIL [Concomitant]
     Indication: HYPERTENSION
     Dosage: DOSE: UNK
     Route: 048
  7. PARACODIN                          /00063002/ [Concomitant]
     Route: 048
  8. SINTROM [Concomitant]
     Indication: PULMONARY EMBOLISM
     Dosage: DOSE: UNK
     Route: 048
  9. TRAUMEEL S                         /01124601/ [Concomitant]
     Dosage: DOSE: UNK
     Route: 048
  10. CITALOPRAM [Concomitant]
     Route: 048

REACTIONS (3)
  - ACUTE PRERENAL FAILURE [None]
  - EPISTAXIS [None]
  - HAEMORRHAGIC DISORDER [None]
